FAERS Safety Report 8135799-4 (Version None)
Quarter: 2012Q1

REPORT INFORMATION
  Report Type: 
  Country: None (occurrence: None)
  Receive Date: 20120210
  Receipt Date: 20120131
  Transmission Date: 20120608
  Serious: Yes (Other)
  Sender: FDA-Public Use
  Company Number: 2012AP000272

PATIENT
  Age: 75 Year
  Sex: Female
  Weight: 61.2356 kg

DRUGS (1)
  1. LATANOPROST [Suspect]
     Indication: GLAUCOMA
     Dosage: OPH
     Route: 047
     Dates: start: 20110101, end: 20120101

REACTIONS (3)
  - EYE HAEMORRHAGE [None]
  - RASH [None]
  - EYE DISORDER [None]
